FAERS Safety Report 17949735 (Version 2)
Quarter: 2020Q2

REPORT INFORMATION
  Report Type: Spontaneous
  Country: US (occurrence: US)
  Receive Date: 20200626
  Receipt Date: 20200629
  Transmission Date: 20200714
  Serious: Yes (Death)
  Sender: FDA-Public Use
  Company Number: US-ALKERMES INC.-ALK-2020-002560

PATIENT
  Age: 41 Year
  Sex: Male

DRUGS (1)
  1. NO COMPANY PRODUCT [Suspect]
     Active Substance: UNSPECIFIED INGREDIENT
     Dosage: NO DRUG ADMINISTERED

REACTIONS (1)
  - Death [Fatal]

NARRATIVE: CASE EVENT DATE: 20200601
